FAERS Safety Report 10044829 (Version 1)
Quarter: 2014Q1

REPORT INFORMATION
  Report Type: Spontaneous
  Country: US (occurrence: None)
  Receive Date: 20140318
  Receipt Date: 20140318
  Transmission Date: 20141002
  Serious: Yes (Hospitalization)
  Sender: FDA-Public Use
  Company Number: DL2014-0240

PATIENT
  Age: 31 Year
  Sex: Female

DRUGS (4)
  1. MIFEPRISTONE [Suspect]
     Indication: ABORTION INDUCED
     Route: 048
     Dates: start: 20140124
  2. MIFEPRISTONE [Suspect]
     Route: 048
     Dates: start: 20140124
  3. MISOPROSTOL [Suspect]
     Route: 002
     Dates: start: 20140125
  4. AZITHROMYCIN [Concomitant]

REACTIONS (2)
  - Haemorrhage [None]
  - Syncope [None]
